FAERS Safety Report 23523871 (Version 2)
Quarter: 2024Q1

REPORT INFORMATION
  Report Type: Spontaneous
  Country: IT (occurrence: IT)
  Receive Date: 20240214
  Receipt Date: 20240219
  Transmission Date: 20240410
  Serious: Yes (Life-Threatening, Hospitalization)
  Sender: FDA-Public Use
  Company Number: None

PATIENT
  Age: 58 Year
  Sex: Male

DRUGS (2)
  1. PIROXICAM [Suspect]
     Active Substance: PIROXICAM
     Indication: Intentional self-injury
     Dosage: 15 OF PIROXICAM (TOTAL)
     Route: 048
     Dates: start: 20231104, end: 20231104
  2. AUGMENTIN [Suspect]
     Active Substance: AMOXICILLIN\CLAVULANATE POTASSIUM
     Indication: Intentional self-injury
     Dosage: 6 TABLETS OF AUGMENTIN ( (TOTAL)
     Route: 048
     Dates: start: 20231104, end: 20231104

REACTIONS (5)
  - Intentional overdose [Recovering/Resolving]
  - Drug abuse [Recovering/Resolving]
  - Catatonia [Recovering/Resolving]
  - Confusional state [Recovering/Resolving]
  - Tachycardia [Recovering/Resolving]

NARRATIVE: CASE EVENT DATE: 20231104
